FAERS Safety Report 17067993 (Version 1)
Quarter: 2019Q4

REPORT INFORMATION
  Report Type: Spontaneous
  Country: US (occurrence: US)
  Receive Date: 20191122
  Receipt Date: 20191122
  Transmission Date: 20200122
  Serious: No
  Sender: FDA-Public Use
  Company Number: US-TARO-2019TAR00681

PATIENT
  Age: 65 Year
  Sex: Female

DRUGS (11)
  1. VITAMIN B12 [Concomitant]
     Active Substance: CYANOCOBALAMIN
  2. BUTENAFINE HYDROCHLORIDE [Suspect]
     Active Substance: BUTENAFINE HYDROCHLORIDE
     Indication: RASH
     Dosage: UNK, 1X/DAY
     Route: 061
     Dates: start: 20190927, end: 20190928
  3. PAROXETINE. [Concomitant]
     Active Substance: PAROXETINE
  4. LITHIUM CARBONATE. [Concomitant]
     Active Substance: LITHIUM CARBONATE
  5. GABAPENTIN. [Concomitant]
     Active Substance: GABAPENTIN
  6. BUTENAFINE HYDROCHLORIDE [Suspect]
     Active Substance: BUTENAFINE HYDROCHLORIDE
     Indication: SKIN ABRASION
     Dosage: UNK UNK, 2X/DAY
     Route: 061
     Dates: start: 20190929, end: 20190929
  7. BUTENAFINE HYDROCHLORIDE [Suspect]
     Active Substance: BUTENAFINE HYDROCHLORIDE
     Dosage: UNK, 1X/DAY IN THE MORNING
     Route: 061
     Dates: start: 20190930, end: 20190930
  8. BUPROPION. [Concomitant]
     Active Substance: BUPROPION
  9. VERAPAMIL [Concomitant]
     Active Substance: VERAPAMIL HYDROCHLORIDE
  10. DAILY MULTIVITAMIN [Concomitant]
     Active Substance: VITAMINS
     Dosage: UNK, 1X/DAY
  11. ZYRTEC GENERIC [Concomitant]
     Dosage: UNK, 1X/DAY

REACTIONS (7)
  - Product lot number issue [Recovered/Resolved]
  - Unevaluable event [Not Recovered/Not Resolved]
  - Rash pruritic [Not Recovered/Not Resolved]
  - Off label use [Recovered/Resolved]
  - Product quality issue [Recovered/Resolved]
  - Rash [Not Recovered/Not Resolved]
  - Rash erythematous [Not Recovered/Not Resolved]

NARRATIVE: CASE EVENT DATE: 201909
